FAERS Safety Report 11071126 (Version 3)
Quarter: 2015Q2

REPORT INFORMATION
  Report Type: Other
  Country: GB (occurrence: GB)
  Receive Date: 20150428
  Receipt Date: 20150520
  Transmission Date: 20150821
  Serious: Yes (Hospitalization)
  Sender: FDA-Public Use
  Company Number: GB-UNITED THERAPEUTICS-UNT-2015-002492

PATIENT
  Age: 45 Year
  Sex: Female
  Weight: 59.4 kg

DRUGS (5)
  1. VERAPAMIL [Concomitant]
     Active Substance: VERAPAMIL HYDROCHLORIDE
     Indication: ATRIAL FIBRILLATION
     Dosage: 120 MG, ONCE DAILY
     Route: 048
  2. REMODULIN [Suspect]
     Active Substance: TREPROSTINIL
     Dosage: 0.070 ?G/KG, CONTINUING
     Route: 041
     Dates: start: 20051202
  3. REMODULIN [Suspect]
     Active Substance: TREPROSTINIL
     Indication: PRODUCT USED FOR UNKNOWN INDICATION
     Dosage: UNK
     Route: 041
     Dates: start: 2002
  4. DIGOXIN. [Concomitant]
     Active Substance: DIGOXIN
     Indication: ATRIAL FIBRILLATION
     Dosage: 62.5 ?G, ONCE DAILY
     Route: 048
  5. CETRIZINE [Concomitant]
     Active Substance: CETIRIZINE HYDROCHLORIDE
     Indication: ASTHMA
     Dosage: 10 MG, ONCE DAILY
     Route: 048

REACTIONS (2)
  - Pseudomonal sepsis [Recovering/Resolving]
  - Device related infection [Recovered/Resolved]

NARRATIVE: CASE EVENT DATE: 20150225
